FAERS Safety Report 8742997 (Version 5)
Quarter: 2012Q4

REPORT INFORMATION
  Report Type: 
  Country: US (occurrence: US)
  Receive Date: 20120824
  Receipt Date: 20121008
  Transmission Date: 20130627
  Serious: Yes (Hospitalization, Other)
  Sender: FDA-Public Use
  Company Number: US-JNJFOC-20120809512

PATIENT
  Age: 81 Year
  Sex: Male
  Weight: 74.39 kg

DRUGS (6)
  1. XARELTO [Suspect]
     Indication: CEREBROVASCULAR ACCIDENT PROPHYLAXIS
     Route: 048
     Dates: start: 20120427, end: 20120814
  2. XARELTO [Suspect]
     Indication: ATRIAL FIBRILLATION
     Route: 048
     Dates: start: 20120427, end: 20120814
  3. LASIX [Concomitant]
  4. DILTIAZEM [Concomitant]
  5. COREG [Concomitant]
  6. KCL [Concomitant]

REACTIONS (3)
  - Haemorrhage [Recovered/Resolved]
  - Adverse event [Recovered/Resolved]
  - International normalised ratio increased [Unknown]
